FAERS Safety Report 5685987-1 (Version None)
Quarter: 2008Q1

REPORT INFORMATION
  Report Type: 
  Country: None (occurrence: None)
  Receive Date: 20080328
  Receipt Date: 20070828
  Transmission Date: 20080703
  Serious: No
  Sender: FDA-Public Use
  Company Number: US-BAYER-US-2007-032379

PATIENT
  Age: 47 Year
  Sex: Female
  Weight: 73 kg

DRUGS (7)
  1. MIRENA [Suspect]
     Indication: CONTRACEPTION
     Route: 015
     Dates: start: 20070319, end: 20070807
  2. SYNTHROID [Concomitant]
     Dosage: UNIT DOSE: 100 ?G
  3. TOPROL-XL [Concomitant]
     Dosage: UNIT DOSE: 50 MG
  4. ZOCOR [Concomitant]
     Dosage: UNIT DOSE: 20 MG
  5. POTASSIUM CHLORIDE [Concomitant]
  6. HYDROCHLOROTHIAZIDE [Concomitant]
     Dosage: UNIT DOSE: 25 MG
  7. EFFEXOR [Concomitant]
     Dosage: UNIT DOSE: 756 MG

REACTIONS (1)
  - INTRA-UTERINE CONTRACEPTIVE DEVICE EXPELLED [None]
